FAERS Safety Report 8456254-8 (Version None)
Quarter: 2012Q2

REPORT INFORMATION
  Report Type: 
  Country: None (occurrence: None)
  Receive Date: 20120621
  Receipt Date: 20120613
  Transmission Date: 20120825
  Serious: Yes (Other)
  Sender: FDA-Public Use
  Company Number: DE-MILLENNIUM PHARMACEUTICALS, INC.-2011-05457

PATIENT

DRUGS (6)
  1. MELPHALAN HYDROCHLORIDE [Suspect]
     Indication: BREAST CANCER
     Dosage: 200 MG/M2, UNK
  2. MELPHALAN HYDROCHLORIDE [Suspect]
     Indication: MULTIPLE MYELOMA
  3. VELCADE [Suspect]
     Indication: MULTIPLE MYELOMA
  4. THALIDOMIDE [Suspect]
     Indication: BREAST CANCER
  5. THALIDOMIDE [Suspect]
     Indication: MULTIPLE MYELOMA
  6. VELCADE [Suspect]
     Indication: BREAST CANCER

REACTIONS (2)
  - BREAST CANCER [None]
  - NEOPLASM MALIGNANT [None]
